FAERS Safety Report 24045905 (Version 1)
Quarter: 2024Q3

REPORT INFORMATION
  Report Type: Spontaneous
  Country: US (occurrence: None)
  Receive Date: 20240702
  Receipt Date: 20240702
  Transmission Date: 20241016
  Serious: Yes (Other)
  Sender: Public
  Company Number: None

PATIENT
  Age: 44 Year
  Sex: Female
  Weight: 67.5 kg

DRUGS (3)
  1. COPPERTONE PURE AND SIMPLE SUNSCREEN SPF 50 [Suspect]
     Active Substance: ZINC OXIDE
     Indication: Prophylaxis against solar radiation
  2. SYNTHROID [Concomitant]
     Active Substance: LEVOTHYROXINE SODIUM
  3. CLARITIN [Concomitant]
     Active Substance: LORATADINE

REACTIONS (2)
  - Application site vesicles [None]
  - Application site rash [None]

NARRATIVE: CASE EVENT DATE: 20240628
